FAERS Safety Report 15281153 (Version 1)
Quarter: 2018Q3

REPORT INFORMATION
  Report Type: Spontaneous
  Country: US (occurrence: US)
  Receive Date: 20180815
  Receipt Date: 20180815
  Transmission Date: 20181010
  Serious: No
  Sender: FDA-Public Use
  Company Number: US-009507513-1808USA002018

PATIENT
  Sex: Male

DRUGS (1)
  1. ALENDRONATE SODIUM / CHOLCALCIFEROL TABLETS [Suspect]
     Active Substance: ALENDRONATE SODIUM\CHOLECALCIFEROL

REACTIONS (1)
  - Drug screen positive [Unknown]
